FAERS Safety Report 15571610 (Version 1)
Quarter: 2018Q4

REPORT INFORMATION
  Report Type: Spontaneous
  Country: CA (occurrence: CA)
  Receive Date: 20181031
  Receipt Date: 20181031
  Transmission Date: 20190205
  Serious: Yes (Death)
  Sender: FDA-Public Use
  Company Number: CA-PFIZER INC-2018301179

PATIENT
  Age: 63 Year
  Sex: Female
  Weight: 70.6 kg

DRUGS (1)
  1. IBRANCE [Suspect]
     Active Substance: PALBOCICLIB
     Indication: BREAST CANCER METASTATIC
     Dosage: 125 MG, CYCLIC DAILY, FOR 21 DAYS, FOLLOWED BY 7 DAYS OFF
     Route: 048
     Dates: start: 20180816

REACTIONS (1)
  - Death [Fatal]

NARRATIVE: CASE EVENT DATE: 20180910
